FAERS Safety Report 5484556-6 (Version None)
Quarter: 2007Q4

REPORT INFORMATION
  Report Type: 
  Country: None (occurrence: None)
  Receive Date: 20071012
  Receipt Date: 20071001
  Transmission Date: 20080405
  Serious: Yes (Other)
  Sender: FDA-Public Use
  Company Number: US-PFIZER INC-2007082026

PATIENT
  Sex: Female

DRUGS (4)
  1. LYRICA [Suspect]
     Indication: FIBROMYALGIA
     Dosage: DAILY DOSE:75MG
     Route: 048
  2. LEVOXYL [Concomitant]
     Indication: THYROID DISORDER
     Route: 048
  3. COZAAR [Concomitant]
     Route: 048
  4. CELEBREX [Concomitant]
     Indication: ARTHRITIS
     Route: 048

REACTIONS (3)
  - DRUG EFFECT DECREASED [None]
  - FEELING ABNORMAL [None]
  - PHARYNGEAL ERYTHEMA [None]
